FAERS Safety Report 8963766 (Version 1)
Quarter: 2012Q4

REPORT INFORMATION
  Report Type: 
  Country: CN (occurrence: CN)
  Receive Date: 20121214
  Receipt Date: 20121214
  Transmission Date: 20130627
  Serious: Yes (Other)
  Sender: FDA-Public Use
  Company Number: PHHY2012CN112989

PATIENT
  Age: 72 Year
  Sex: Female

DRUGS (13)
  1. TRILEPTAL [Suspect]
     Dosage: 0.3 mg, BID
     Route: 048
  2. CARBAMAZEPINE [Suspect]
     Indication: POST HERPETIC NEURALGIA
     Dosage: 0.1 g, BID
     Dates: start: 20110720
  3. METOPROLOL [Concomitant]
     Indication: ESSENTIAL HYPERTENSION
  4. IRBESARTAN [Concomitant]
     Indication: ESSENTIAL HYPERTENSION
  5. YUREN [Concomitant]
  6. ASPIRIN [Concomitant]
     Route: 048
  7. DIGOXIN [Concomitant]
     Route: 048
  8. VALACICLOVIR [Concomitant]
  9. MECOBALAMIN [Concomitant]
  10. PREGABALIN [Concomitant]
     Dosage: 0.15 g, BID
  11. IBUPROFEN [Concomitant]
  12. CODEINE PHOSPHATE [Concomitant]
  13. ENOXACIN [Concomitant]
     Dosage: 0.4 g, QD
     Route: 041

REACTIONS (7)
  - Urinary tract infection [Unknown]
  - Urinary retention [Recovered/Resolved]
  - Dysuria [Recovered/Resolved]
  - Urine abnormality [Unknown]
  - Pigmentation disorder [Unknown]
  - Tenderness [Unknown]
  - Abdominal distension [Unknown]
